FAERS Safety Report 4376282-1 (Version None)
Quarter: 2004Q2

REPORT INFORMATION
  Report Type: 
  Country: None (occurrence: None)
  Receive Date: 20040608
  Receipt Date: 20031212
  Transmission Date: 20050107
  Serious: Yes (Other)
  Sender: FDA-Public Use
  Company Number: 200314653BCC

PATIENT
  Age: 66 Year
  Sex: Male
  Weight: 102.0593 kg

DRUGS (5)
  1. ALEVE [Suspect]
     Indication: ARTHRALGIA
     Dosage: 440 MG, BID, ORAL
     Route: 048
     Dates: start: 20031210, end: 20031211
  2. BACLOFEN [Concomitant]
  3. DITROPAN [Concomitant]
  4. BUMETANIDE [Concomitant]
  5. TYLENOL [Concomitant]

REACTIONS (2)
  - BLOOD URINE [None]
  - EPISTAXIS [None]
